FAERS Safety Report 10914765 (Version 4)
Quarter: 2016Q3

REPORT INFORMATION
  Report Type: Report from Study
  Country: JP (occurrence: JP)
  Receive Date: 20150313
  Receipt Date: 20160923
  Transmission Date: 20161109
  Serious: Yes (Other)
  Sender: FDA-Public Use
  Company Number: JP-ASTELLAS-2015JP004869

PATIENT
  Age: 69 Year
  Sex: Female
  Weight: 50 kg

DRUGS (18)
  1. MIRABEGRON [Suspect]
     Active Substance: MIRABEGRON
     Indication: HYPERTONIC BLADDER
     Route: 048
     Dates: start: 20150120, end: 20160201
  2. SALICYLIC ACID. [Concomitant]
     Active Substance: SALICYLIC ACID
     Indication: HYPERKERATOSIS
     Dosage: AT ADEQUATE DOSE
     Route: 062
     Dates: start: 2014
  3. DETRUSITOL [Concomitant]
     Active Substance: TOLTERODINE TARTRATE
     Indication: HYPERTONIC BLADDER
     Route: 048
     Dates: start: 20150203, end: 20160201
  4. FLOMOX                             /01418603/ [Concomitant]
     Active Substance: CEFCAPENE PIVOXIL HYDROCHLORIDE HYDRATE
     Indication: LIP INJURY
     Route: 048
     Dates: start: 20150126, end: 20150129
  5. PNEUMOVAX 23 [Concomitant]
     Active Substance: PNEUMOCOCCAL VACCINE, POLYVALENT 23
     Indication: PROPHYLAXIS
     Dosage: 0.5 ML, ONCE DAILY
     Route: 058
     Dates: start: 20150701, end: 20150701
  6. PANSPORIN T [Concomitant]
     Indication: CYSTITIS
     Route: 048
     Dates: start: 20150810, end: 20150810
  7. ATORVASTATIN [Concomitant]
     Active Substance: ATORVASTATIN
     Indication: HYPERLIPIDAEMIA
     Route: 048
     Dates: start: 2014, end: 20151015
  8. BETANIS [Suspect]
     Active Substance: MIRABEGRON
     Indication: HYPERTONIC BLADDER
     Route: 048
     Dates: start: 20141127, end: 20150119
  9. AIMIX [Concomitant]
     Active Substance: AMLODIPINE BESYLATE\IRBESARTAN
     Indication: HYPERTENSION
     Route: 048
     Dates: start: 2014, end: 20151015
  10. ORA                                /01372201/ [Concomitant]
     Indication: ANAESTHESIA PROCEDURE
     Route: 061
     Dates: start: 20150126, end: 20150126
  11. TYOTOCIN [Concomitant]
     Indication: CYSTITIS
     Route: 048
     Dates: start: 20150806, end: 20150807
  12. FLOMOX                             /01418603/ [Concomitant]
     Active Substance: CEFCAPENE PIVOXIL HYDROCHLORIDE HYDRATE
     Indication: LOCALISED INFECTION
  13. BIOFERMIN R [Concomitant]
     Active Substance: BACILLUS SUBTILIS\LACTOBACILLUS ACIDOPHILUS\STREPTOCOCCUS FAECAIS
     Indication: PROPHYLAXIS AGAINST DIARRHOEA
     Route: 048
     Dates: start: 20150513, end: 20150516
  14. GRACEVIT [Concomitant]
     Active Substance: SITAFLOXACIN
     Indication: CYSTITIS
     Route: 048
     Dates: start: 20150820, end: 20150825
  15. CLENAFIN [Concomitant]
     Indication: DERMATOPHYTOSIS OF NAIL
     Dosage: AT ADEQUATE DOSE
     Route: 061
     Dates: start: 2014, end: 20150715
  16. GENTACIN [Concomitant]
     Active Substance: GENTAMICIN SULFATE
     Indication: LOCALISED INFECTION
     Dosage: AT ADEQUATE DOSE
     Route: 061
     Dates: start: 20150513, end: 20150516
  17. PASTARON SOFT [Concomitant]
     Indication: HYPERKERATOSIS
     Dosage: AT ADEQUATE DOSE
     Route: 062
     Dates: start: 2014
  18. FLOMOX                             /01418603/ [Concomitant]
     Active Substance: CEFCAPENE PIVOXIL HYDROCHLORIDE HYDRATE
     Indication: TOOTH FRACTURE
     Route: 048
     Dates: start: 20150513, end: 20150516

REACTIONS (7)
  - Lip injury [Recovered/Resolved]
  - Contusion [Recovered/Resolved]
  - Localised infection [Recovered/Resolved]
  - Tinea pedis [Recovered/Resolved]
  - Cystitis [Recovered/Resolved]
  - Tooth fracture [Recovered/Resolved]
  - Oedema peripheral [Recovered/Resolved]

NARRATIVE: CASE EVENT DATE: 20150125
